FAERS Safety Report 11289248 (Version 1)
Quarter: 2015Q3

REPORT INFORMATION
  Report Type: Spontaneous
  Country: GB (occurrence: GB)
  Receive Date: 20150721
  Receipt Date: 20150721
  Transmission Date: 20151125
  Serious: Yes (Other)
  Sender: FDA-Public Use
  Company Number: GB-PFIZER INC-2015235816

PATIENT
  Age: 41 Year
  Sex: Female
  Weight: 66.67 kg

DRUGS (3)
  1. CLIMAVAL [Concomitant]
     Active Substance: ESTRADIOL VALERATE
     Dosage: 2 MG, UNK
  2. FEXOFENADINE HYDROCHLORIDE. [Concomitant]
     Active Substance: FEXOFENADINE HYDROCHLORIDE
     Dosage: 180 MG, UNK
  3. PREGABALIN. [Suspect]
     Active Substance: PREGABALIN
     Indication: FIBROMYALGIA
     Dosage: 300 MG, 1X/DAY
     Route: 048
     Dates: start: 201303, end: 201506

REACTIONS (7)
  - Hair growth abnormal [Unknown]
  - Amnesia [Recovered/Resolved]
  - Documented hypersensitivity to administered product [Unknown]
  - Dysarthria [Recovered/Resolved]
  - Confusional state [Recovered/Resolved]
  - Dizziness [Recovered/Resolved]
  - Alopecia [Unknown]

NARRATIVE: CASE EVENT DATE: 201305
